FAERS Safety Report 7581530-0 (Version None)
Quarter: 2011Q2

REPORT INFORMATION
  Report Type: 
  Country: None (occurrence: None)
  Receive Date: 20110629
  Receipt Date: 20110621
  Transmission Date: 20111010
  Serious: Yes (Hospitalization)
  Sender: FDA-Public Use
  Company Number: PHHO2011TH10601

PATIENT
  Sex: Female
  Weight: 12.9 kg

DRUGS (2)
  1. EXJADE [Suspect]
     Indication: BLOOD IRON INCREASED
     Dosage: 250 MG, 1 TAB
     Dates: start: 20090716, end: 20110314
  2. EXJADE [Suspect]
     Dosage: 250 MG, 1 TAB
     Dates: start: 20110317

REACTIONS (1)
  - GASTROENTERITIS [None]
